FAERS Safety Report 25606589 (Version 1)
Quarter: 2025Q3

REPORT INFORMATION
  Report Type: Spontaneous
  Country: US (occurrence: US)
  Receive Date: 20250725
  Receipt Date: 20250725
  Transmission Date: 20251021
  Serious: Yes (Other)
  Sender: AMGEN
  Company Number: US-AMGEN-USASP2025140957

PATIENT
  Age: 14 Year
  Sex: Female

DRUGS (8)
  1. RITUXIMAB [Suspect]
     Active Substance: RITUXIMAB
     Indication: Autoimmune vasculitis
     Route: 065
  2. PREDNISOLONE [Concomitant]
     Active Substance: PREDNISOLONE
     Indication: Autoimmune vasculitis
     Route: 065
  3. PREDNISOLONE [Concomitant]
     Active Substance: PREDNISOLONE
     Route: 065
  4. CELLCEPT [Concomitant]
     Active Substance: MYCOPHENOLATE MOFETIL
     Indication: Autoimmune vasculitis
     Route: 065
  5. BUSULFAN [Concomitant]
     Active Substance: BUSULFAN
     Dosage: 3.2 MILLIGRAM/KILOGRAM, QD, 2 DAYS ON DAYS 7 AND 6
     Route: 065
  6. FLUDARABINE [Concomitant]
     Active Substance: FLUDARABINE PHOSPHATE
  7. CYCLOPHOSPHAMIDE [Concomitant]
     Active Substance: CYCLOPHOSPHAMIDE
     Route: 065
  8. TACROLIMUS [Concomitant]
     Active Substance: TACROLIMUS

REACTIONS (10)
  - Chronic active Epstein-Barr virus infection [Unknown]
  - Uveitis [Unknown]
  - Immune thrombocytopenia [Unknown]
  - Hepatopulmonary syndrome [Recovered/Resolved]
  - Coronary artery dilatation [Not Recovered/Not Resolved]
  - Cardiac dysfunction [Unknown]
  - Aortic aneurysm [Unknown]
  - Pulmonary hypertension [Unknown]
  - Aortic disorder [Unknown]
  - Off label use [Unknown]
